FAERS Safety Report 9520141 (Version 3)
Quarter: 2013Q3

REPORT INFORMATION
  Report Type: Report from Study
  Country: US (occurrence: US)
  Receive Date: 20130912
  Receipt Date: 20130926
  Transmission Date: 20140515
  Serious: Yes (Other)
  Sender: FDA-Public Use
  Company Number: US-BRISTOL-MYERS SQUIBB COMPANY-18901652

PATIENT
  Age: 75 Year
  Sex: Female
  Weight: 51.7 kg

DRUGS (25)
  1. IPILIMUMAB [Suspect]
     Indication: MALIGNANT MELANOMA
     Dosage: 509MG;IV
     Route: 042
     Dates: start: 20130213, end: 20130417
  2. VEMURAFENIB [Suspect]
     Indication: MALIGNANT MELANOMA
     Route: 048
     Dates: start: 20121219, end: 20130130
  3. NEURONTIN [Concomitant]
  4. MEGACE [Concomitant]
     Dates: start: 20121214
  5. ATARAX [Concomitant]
     Dates: start: 20130102
  6. PERIDEX [Concomitant]
     Route: 048
     Dates: start: 20130508, end: 20130524
  7. CLINDAMYCIN [Concomitant]
     Dosage: MISC,ONCE?ADD-VAN BAG?1DF: 600MG/ML
     Dates: start: 20130508
  8. DECADRON [Concomitant]
     Dosage: 1DF: 10MG/ML;10MG
     Dates: start: 20130508
  9. LOVENOX [Concomitant]
     Dates: start: 20130508, end: 20130524
  10. ONDANSETRON [Concomitant]
     Dosage: 1DF:4MG/ML
     Dates: start: 20130524, end: 20130524
  11. PROTONIX [Concomitant]
     Dosage: 1DF:40MG/ML
     Dates: start: 20130508, end: 20130524
  12. VANCOMYCIN [Concomitant]
     Dosage: CONTINUING
     Dates: start: 20130508
  13. SODIUM CHLORIDE [Concomitant]
     Dosage: 1DF:1.000MG/ML
     Dates: start: 20130508
  14. TYLENOL [Concomitant]
     Dosage: ALSO TOOK 325MG
     Dates: start: 20130508
  15. COLACE [Concomitant]
     Dates: start: 20130508
  16. NORCO [Concomitant]
     Dates: start: 20130508, end: 20130524
  17. HYDROMORPHONE [Concomitant]
     Dosage: 1MG:24MAY13
     Dates: start: 20130508, end: 20130524
  18. PHENOL [Concomitant]
     Dosage: 10OZ
     Route: 061
     Dates: start: 20130508, end: 20130524
  19. PHENERGAN [Concomitant]
     Dosage: 25MG:08MAY13-24MAY13
     Dates: start: 20130508, end: 20130524
  20. RESTORIL [Concomitant]
     Dates: start: 20130508, end: 20130524
  21. DULCOLAX [Concomitant]
     Dosage: 5MG:24MAY13
     Dates: start: 20130508, end: 20130524
  22. DEXTROSE [Concomitant]
     Dates: start: 20130508, end: 20130524
  23. DOCUSATE SODIUM [Concomitant]
     Dates: start: 20130508
  24. CARDIZEM [Concomitant]
     Dosage: DRIP
  25. DIGOXIN [Concomitant]

REACTIONS (4)
  - Dysphagia [Recovered/Resolved]
  - Odynophagia [Recovered/Resolved]
  - Atrial fibrillation [Recovered/Resolved]
  - Hypotension [Recovered/Resolved]
